FAERS Safety Report 19069604 (Version 2)
Quarter: 2021Q1

REPORT INFORMATION
  Report Type: Spontaneous
  Country: DE (occurrence: DE)
  Receive Date: 20210329
  Receipt Date: 20210330
  Transmission Date: 20210420
  Serious: Yes (Death, Hospitalization)
  Sender: FDA-Public Use
  Company Number: DE-PFIZER INC-2021038502

PATIENT
  Sex: Female

DRUGS (2)
  1. LORAZEPAM. [Suspect]
     Active Substance: LORAZEPAM
     Dosage: 3 MG, DAILY
     Dates: start: 2005
  2. LORAZEPAM. [Suspect]
     Active Substance: LORAZEPAM
     Dosage: 5 MG, DAILY
     Dates: end: 2007

REACTIONS (7)
  - Cardiovascular disorder [Unknown]
  - Anxiety [Unknown]
  - Restlessness [Unknown]
  - Cardiac disorder [Unknown]
  - Agitation [Unknown]
  - Death [Fatal]
  - Withdrawal syndrome [Unknown]
